FAERS Safety Report 21811079 (Version 1)
Quarter: 2023Q1

REPORT INFORMATION
  Report Type: Report from Study
  Country: CA (occurrence: CA)
  Receive Date: 20230103
  Receipt Date: 20230103
  Transmission Date: 20230417
  Serious: Yes (Hospitalization)
  Sender: FDA-Public Use
  Company Number: CA-JNJFOC-20221260987

PATIENT
  Age: 87 Year
  Sex: Male

DRUGS (13)
  1. ERLEADA [Suspect]
     Active Substance: APALUTAMIDE
     Indication: Hormone-dependent prostate cancer
     Route: 048
     Dates: start: 20221207
  2. COVID-19 VACCINE NOS [Suspect]
     Active Substance: COVID-19 VACCINE NOS
     Indication: Product used for unknown indication
     Dates: start: 20221221
  3. CEFIXIME [Concomitant]
     Active Substance: CEFIXIME
  4. ZOLADEX [Concomitant]
     Active Substance: GOSERELIN ACETATE
     Dates: start: 20221123
  5. CASODEX [Concomitant]
     Active Substance: BICALUTAMIDE
     Dates: end: 20221206
  6. PANTOPRAZOLE [Concomitant]
     Active Substance: PANTOPRAZOLE
  7. SILODOSIN [Concomitant]
     Active Substance: SILODOSIN
  8. ATORVASTATIN [Concomitant]
     Active Substance: ATORVASTATIN
  9. SLOW-K [Concomitant]
     Active Substance: POTASSIUM CHLORIDE
  10. ERGOCALCIFEROL [Concomitant]
     Active Substance: ERGOCALCIFEROL
  11. SENOKOT [Concomitant]
     Active Substance: SENNOSIDES
  12. CALCIUM\CHOLECALCIFEROL [Concomitant]
     Active Substance: CALCIUM\CHOLECALCIFEROL
  13. ASPIRIN [Concomitant]
     Active Substance: ASPIRIN
     Indication: Product used for unknown indication
     Route: 065

REACTIONS (2)
  - Cystitis [Recovering/Resolving]
  - Balance disorder [Unknown]
